FAERS Safety Report 6451016-5 (Version None)
Quarter: 2009Q4

REPORT INFORMATION
  Report Type: 
  Country: None (occurrence: None)
  Receive Date: 20091123
  Receipt Date: 20091119
  Transmission Date: 20100525
  Serious: Yes (Hospitalization)
  Sender: FDA-Public Use
  Company Number: B0606711A

PATIENT
  Sex: Female
  Weight: 70 kg

DRUGS (3)
  1. LAPATINIB [Suspect]
     Indication: BREAST CANCER METASTATIC
     Dosage: 1250MG PER DAY
     Route: 048
     Dates: start: 20080519
  2. CAPECITABINE [Suspect]
     Indication: BREAST CANCER METASTATIC
     Dosage: 1500MG UNKNOWN
     Route: 048
     Dates: start: 20080519
  3. PANDEMRIX H1N1 [Suspect]

REACTIONS (4)
  - ASTHENIA [None]
  - DYSPNOEA [None]
  - PYREXIA [None]
  - VIRAL INFECTION [None]
